FAERS Safety Report 16879996 (Version 1)
Quarter: 2019Q4

REPORT INFORMATION
  Report Type: Spontaneous
  Country: US (occurrence: US)
  Receive Date: 20190807
  Receipt Date: 20190807
  Transmission Date: 20200122
  Serious: Yes (Hospitalization, Disabling)
  Sender: FDA-Public Use
  Company Number: None

PATIENT
  Age: 29 Year
  Sex: Male
  Weight: 106.59 kg

DRUGS (8)
  1. FLUVOXAMINE ER 150MG CAP/GENERIC FOR LUVOX CR 150MG [Suspect]
     Active Substance: FLUVOXAMINE
     Indication: POST-TRAUMATIC STRESS DISORDER
     Dosage: ?          QUANTITY:1 DF DOSAGE FORM;?
     Route: 048
  2. LUVOX ER 400MG [Concomitant]
  3. FLUVOXAMINE ER 150MG CAP/GENERIC FOR LUVOX CR 150MG [Suspect]
     Active Substance: FLUVOXAMINE
     Indication: OBSESSIVE-COMPULSIVE DISORDER
     Dosage: ?          QUANTITY:1 DF DOSAGE FORM;?
     Route: 048
  4. SYNTHROID 125MG [Concomitant]
  5. FLUVOXAMINE ER 150MG CAP/GENERIC FOR LUVOX CR 150MG [Suspect]
     Active Substance: FLUVOXAMINE
     Indication: PANIC DISORDER
     Dosage: ?          QUANTITY:1 DF DOSAGE FORM;?
     Route: 048
  6. ATENOLOL 150MG [Concomitant]
  7. LAMICTAL 400MG [Concomitant]
  8. KLUNOPIN 2MG [Concomitant]

REACTIONS (5)
  - Heart rate irregular [None]
  - Anxiety [None]
  - Drug dependence [None]
  - Product substitution issue [None]
  - Product dosage form issue [None]
